FAERS Safety Report 5066408-9 (Version None)
Quarter: 2006Q3

REPORT INFORMATION
  Report Type: 
  Country: None (occurrence: None)
  Receive Date: 20060728
  Receipt Date: 20060720
  Transmission Date: 20061208
  Serious: Yes (Hospitalization, Other)
  Sender: FDA-Public Use
  Company Number: HQWYE821504AUG04

PATIENT
  Age: 51 Year
  Sex: Female
  Weight: 63.11 kg

DRUGS (1)
  1. PREMPRO [Suspect]
     Indication: HORMONE REPLACEMENT THERAPY
     Dosage: 0.625MG/2.5MG
     Dates: start: 20000310, end: 20010601

REACTIONS (2)
  - BREAST CANCER METASTATIC [None]
  - METASTASES TO EYE [None]
